FAERS Safety Report 6931815-3 (Version None)
Quarter: 2010Q3

REPORT INFORMATION
  Report Type: 
  Country: None (occurrence: None)
  Receive Date: 20100819
  Receipt Date: 20100811
  Transmission Date: 20110219
  Serious: No
  Sender: FDA-Public Use
  Company Number: US-BIOGENIDEC-2010BI027539

PATIENT
  Sex: Female

DRUGS (2)
  1. AVONEX [Suspect]
     Indication: MULTIPLE SCLEROSIS
     Route: 030
     Dates: start: 20080401, end: 20100301
  2. AVONEX [Suspect]
     Route: 030
     Dates: start: 20100421

REACTIONS (16)
  - ABDOMINAL DISCOMFORT [None]
  - AMENORRHOEA [None]
  - ARTHRALGIA [None]
  - ARTHRITIS [None]
  - DIARRHOEA [None]
  - DYSPEPSIA [None]
  - DYSSTASIA [None]
  - FATIGUE [None]
  - FLATULENCE [None]
  - HEADACHE [None]
  - HOT FLUSH [None]
  - LOSS OF CONTROL OF LEGS [None]
  - MENORRHAGIA [None]
  - MOBILITY DECREASED [None]
  - PAIN IN EXTREMITY [None]
  - STRESS [None]
